FAERS Safety Report 11304813 (Version 2)
Quarter: 2015Q3

REPORT INFORMATION
  Report Type: Spontaneous
  Country: FR (occurrence: FR)
  Receive Date: 20150723
  Receipt Date: 20150806
  Transmission Date: 20151125
  Serious: Yes (Hospitalization)
  Sender: FDA-Public Use
  Company Number: FR-PFIZER INC-2015238970

PATIENT
  Age: 90 Year
  Sex: Female
  Weight: 59 kg

DRUGS (11)
  1. CARDENSIEL [Suspect]
     Active Substance: BISOPROLOL FUMARATE
     Indication: CARDIAC FAILURE
     Dosage: 6.25 MG, DAILY
     Route: 048
  2. COVERSYL /00790703/ [Suspect]
     Active Substance: PERINDOPRIL
     Indication: HYPERTENSION
     Dosage: 10 MG, 1X/DAY
     Route: 048
  3. FUROSEMIDE. [Suspect]
     Active Substance: FUROSEMIDE
     Dosage: 180 MG, DAILY
     Route: 048
  4. TAHOR [Concomitant]
     Active Substance: ATORVASTATIN CALCIUM
     Dosage: 20 MG, UNK
  5. DIFFU K [Suspect]
     Active Substance: POTASSIUM CHLORIDE
     Dosage: 600 MG, 3X/DAY
     Route: 048
  6. TEMESTA /00273201/ [Concomitant]
     Active Substance: LORAZEPAM
     Dosage: 1 MG, UNK
  7. INSPRA [Suspect]
     Active Substance: EPLERENONE
     Dosage: 25 MG, 1X/DAY
     Route: 048
  8. PREVISCAN /00789001/ [Concomitant]
     Active Substance: FLUINDIONE
     Dosage: 20 MG, UNK
  9. DEXERYL /01579901/ [Concomitant]
     Active Substance: GLYCERIN\MINERAL OIL\PARAFFIN
  10. LYRICA [Concomitant]
     Active Substance: PREGABALIN
     Dosage: 25 MG, UNK
  11. INEXIUM /01479302/ [Concomitant]
     Active Substance: ESOMEPRAZOLE MAGNESIUM
     Dosage: 20 MG, UNK

REACTIONS (3)
  - Acute kidney injury [Recovered/Resolved]
  - Contraindicated drug administered [Unknown]
  - Hyperkalaemia [Recovered/Resolved]

NARRATIVE: CASE EVENT DATE: 20140321
